FAERS Safety Report 5323305-9 (Version None)
Quarter: 2007Q2

REPORT INFORMATION
  Report Type: 
  Country: None (occurrence: None)
  Receive Date: 20070221
  Receipt Date: 20061212
  Transmission Date: 20071010
  Serious: Yes (Hospitalization)
  Sender: FDA-Public Use
  Company Number: BDI-008916

PATIENT
  Sex: Female

DRUGS (3)
  1. ISOVUE-370 [Suspect]
     Indication: ABDOMEN SCAN
     Dosage: 80 ML ONCE IV
     Route: 042
     Dates: start: 20061204, end: 20061204
  2. ISOVUE-370 [Suspect]
     Indication: COMPUTERISED TOMOGRAM
     Dosage: 80 ML ONCE IV
     Route: 042
     Dates: start: 20061204, end: 20061204
  3. ISOVUE-370 [Suspect]
     Indication: FISTULA
     Dosage: 80 ML ONCE IV
     Route: 042
     Dates: start: 20061204, end: 20061204

REACTIONS (1)
  - HYPERSENSITIVITY [None]
